FAERS Safety Report 11253190 (Version 2)
Quarter: 2015Q3

REPORT INFORMATION
  Report Type: Spontaneous
  Country: JP (occurrence: JP)
  Receive Date: 20150709
  Receipt Date: 20150812
  Transmission Date: 20151125
  Serious: Yes (Other)
  Sender: FDA-Public Use
  Company Number: JP-TAKEDA-2015TJP011758

PATIENT
  Age: 72 Year
  Sex: Male
  Weight: 65.4 kg

DRUGS (7)
  1. LAMPION PACK (LANSOPRAZOLE, AMOXICILLIN, METRONIDAZOLE) [Suspect]
     Active Substance: AMOXICILLIN\LANSOPRAZOLE\METRONIDAZOLE
     Indication: HELICOBACTER INFECTION
     Dosage: 0.5 DF, BID
     Route: 048
     Dates: start: 20150621, end: 20150621
  2. MUCOSTA [Concomitant]
     Active Substance: REBAMIPIDE
     Indication: GASTRITIS
     Dosage: 100 MG, QD
     Route: 048
     Dates: start: 20131008
  3. LAMPION PACK (LANSOPRAZOLE, AMOXICILLIN, METRONIDAZOLE) [Suspect]
     Active Substance: AMOXICILLIN\LANSOPRAZOLE\METRONIDAZOLE
     Dosage: 0.5 DF, QD
     Route: 048
     Dates: start: 20150622, end: 20150622
  4. AMARYL [Concomitant]
     Active Substance: GLIMEPIRIDE
     Indication: DIABETES MELLITUS
     Dosage: 1 MG, QD
     Route: 048
     Dates: start: 20121211
  5. CELECOX [Concomitant]
     Active Substance: CELECOXIB
     Indication: ABDOMINAL PAIN
     Dosage: 200 MG, BID
     Route: 048
     Dates: start: 20130305
  6. AMLODIN [Concomitant]
     Active Substance: AMLODIPINE BESYLATE
     Indication: HYPERTENSION
     Dosage: 5 MG, QD
     Route: 048
     Dates: start: 20120310
  7. TENELIA [Concomitant]
     Active Substance: CITALOPRAM HYDROBROMIDE
     Indication: DIABETES MELLITUS
     Dosage: 20 MG, QD
     Route: 048
     Dates: start: 20131220

REACTIONS (3)
  - Abdominal pain [None]
  - Liver disorder [Recovered/Resolved]
  - Jaundice [Recovered/Resolved]

NARRATIVE: CASE EVENT DATE: 20150622
